APPROVED DRUG PRODUCT: VANCOMYCIN HYDROCHLORIDE
Active Ingredient: VANCOMYCIN HYDROCHLORIDE
Strength: EQ 5GM BASE/VIAL
Dosage Form/Route: INJECTABLE;INJECTION
Application: A063076 | Product #001 | TE Code: AP
Applicant: HOSPIRA INC
Approved: Dec 21, 1990 | RLD: No | RS: Yes | Type: RX